FAERS Safety Report 10939751 (Version 1)
Quarter: 2015Q1

REPORT INFORMATION
  Report Type: Spontaneous
  Country: US (occurrence: None)
  Receive Date: 20150212
  Receipt Date: 20150212
  Transmission Date: 20150721
  Serious: No
  Sender: FDA-Public Use
  Company Number: TPA2011A04786

PATIENT
  Age: 51 Year
  Sex: Male

DRUGS (2)
  1. PROBENECID. [Concomitant]
     Active Substance: PROBENECID
  2. ULORIC [Suspect]
     Active Substance: FEBUXOSTAT
     Indication: GOUT
     Dates: start: 20110401, end: 2011

REACTIONS (1)
  - Rash [None]
